FAERS Safety Report 16817471 (Version 2)
Quarter: 2022Q2

REPORT INFORMATION
  Report Type: Spontaneous
  Country: US (occurrence: US)
  Receive Date: 20190917
  Receipt Date: 20220415
  Transmission Date: 20220720
  Serious: No
  Sender: FDA-Public Use
  Company Number: US-PFIZER INC-2019396403

PATIENT
  Age: 72 Year
  Sex: Female
  Weight: 51.71 kg

DRUGS (2)
  1. NORVASC [Suspect]
     Active Substance: AMLODIPINE BESYLATE
     Indication: Blood pressure abnormal
     Dosage: 10 MG, DAILY [SPLITS THE 10 MG PILL AND TAKES 5 MG IN THE MORNING AND 5 MG AT NIGHT]
     Dates: start: 1995
  2. NORVASC [Suspect]
     Active Substance: AMLODIPINE BESYLATE
     Dosage: 10 MG, DAILY (CUT IT IN HALF, TAKE HALF IN THE MORNING AND THE OTHER HALF AT NIGHT)
     Dates: start: 2005

REACTIONS (2)
  - Somnolence [Unknown]
  - Intentional product misuse [Unknown]
